FAERS Safety Report 4536593-3 (Version None)
Quarter: 2004Q4

REPORT INFORMATION
  Report Type: 
  Country: None (occurrence: None)
  Receive Date: 20041223
  Receipt Date: 20021028
  Transmission Date: 20050328
  Serious: Yes (Death, Hospitalization)
  Sender: FDA-Public Use
  Company Number: GB-AMGEN-UK022149

PATIENT
  Sex: Female
  Weight: 52.6 kg

DRUGS (3)
  1. PEGFILGRASTIM [Suspect]
     Indication: CHEMOTHERAPY
     Route: 058
     Dates: start: 20021018, end: 20021018
  2. BRUFEN [Concomitant]
     Route: 048
     Dates: start: 20021024, end: 20021027
  3. DOMPERIDONE [Concomitant]
     Route: 048
     Dates: start: 20021024, end: 20021027

REACTIONS (13)
  - CARDIAC ARREST [None]
  - COLD SWEAT [None]
  - DIARRHOEA [None]
  - HALLUCINATION [None]
  - HEADACHE [None]
  - MALIGNANT NEOPLASM PROGRESSION [None]
  - MELAENA [None]
  - METASTASES TO LIVER [None]
  - METASTATIC NEOPLASM [None]
  - NAUSEA [None]
  - PALLOR [None]
  - SPLEEN CONGESTION [None]
  - TUMOUR NECROSIS [None]
